FAERS Safety Report 15635980 (Version 2)
Quarter: 2018Q4

REPORT INFORMATION
  Report Type: Spontaneous
  Country: US (occurrence: US)
  Receive Date: 20181120
  Receipt Date: 20181120
  Transmission Date: 20190205
  Serious: No
  Sender: FDA-Public Use
  Company Number: US-JNJFOC-20181104459

PATIENT
  Sex: Male

DRUGS (2)
  1. MENS ROGAINE [Suspect]
     Active Substance: MINOXIDIL
     Route: 061
  2. MENS ROGAINE [Suspect]
     Active Substance: MINOXIDIL
     Indication: ALOPECIA
     Dosage: ONCE EVERY 2-3 DAYS
     Route: 061

REACTIONS (4)
  - Alopecia [Unknown]
  - Scab [Not Recovered/Not Resolved]
  - Inappropriate schedule of product administration [Unknown]
  - Pain of skin [Unknown]
